FAERS Safety Report 20282828 (Version 1)
Quarter: 2022Q1

REPORT INFORMATION
  Report Type: Report from Study
  Country: US (occurrence: None)
  Receive Date: 20220103
  Receipt Date: 20220103
  Transmission Date: 20220423
  Serious: Yes (Death)
  Sender: FDA-Public Use
  Company Number: 2022A002346

PATIENT
  Sex: Female

DRUGS (3)
  1. SYMBICORT [Suspect]
     Active Substance: BUDESONIDE\FORMOTEROL FUMARATE DIHYDRATE
     Indication: Product used for unknown indication
     Dosage: 80/4.5 UG/INHAL 2 PUFFS TWO TIMES A DAY
     Route: 055
  2. FARXIGA [Suspect]
     Active Substance: DAPAGLIFLOZIN PROPANEDIOL
     Indication: Product used for unknown indication
     Route: 048
  3. BYDUREON [Suspect]
     Active Substance: EXENATIDE
     Indication: Product used for unknown indication
     Route: 058

REACTIONS (1)
  - Death [Fatal]
